FAERS Safety Report 7740753-8 (Version None)
Quarter: 2011Q3

REPORT INFORMATION
  Report Type: 
  Country: None (occurrence: None)
  Receive Date: 20110909
  Receipt Date: 20110412
  Transmission Date: 20111222
  Serious: No
  Sender: FDA-Public Use
  Company Number: US-BAYER-2011-032980

PATIENT
  Sex: Female

DRUGS (1)
  1. MIRENA [Suspect]
     Dosage: UNK
     Dates: start: 20110328

REACTIONS (15)
  - AURICULAR SWELLING [None]
  - GINGIVITIS [None]
  - PNEUMONIA [None]
  - DIZZINESS [None]
  - GINGIVAL ERYTHEMA [None]
  - BURNING SENSATION [None]
  - BLADDER PAIN [None]
  - METRORRHAGIA [None]
  - COUGH [None]
  - UNEVALUABLE EVENT [None]
  - PRURITUS GENERALISED [None]
  - EAR INFECTION [None]
  - OSTEITIS [None]
  - PYREXIA [None]
  - OSTEOMYELITIS [None]
